FAERS Safety Report 21699844 (Version 1)
Quarter: 2022Q4

REPORT INFORMATION
  Report Type: Spontaneous
  Country: BR (occurrence: BR)
  Receive Date: 20221208
  Receipt Date: 20221208
  Transmission Date: 20230113
  Serious: Yes (Other)
  Sender: FDA-Public Use
  Company Number: BR-Accord-290118

PATIENT
  Age: 65 Year
  Sex: Female

DRUGS (6)
  1. DIMETHYL FUMARATE [Suspect]
     Active Substance: DIMETHYL FUMARATE
     Indication: Multiple sclerosis
     Dosage: 120MG IN EACH DOSE, TWICE A DAY;
     Route: 048
     Dates: start: 20221108, end: 20221114
  2. VENLAFAXINE [Concomitant]
     Active Substance: VENLAFAXINE HYDROCHLORIDE
     Indication: Depression
     Dosage: 150MG - 1 TIME A DAY
     Route: 048
     Dates: start: 2012
  3. CLONAZEPAM [Concomitant]
     Active Substance: CLONAZEPAM
     Indication: Insomnia
     Dosage: 0.5MG AT NIGHT
     Route: 048
     Dates: start: 2012
  4. ASPIRIN [Concomitant]
     Active Substance: ASPIRIN
     Indication: Antiallergic therapy
     Dosage: 2 PILLS A DAY, BUT CURRENTLY USES 1 PILL A DAY
     Route: 048
     Dates: start: 20221108
  5. OMEPRAZOLE [Concomitant]
     Active Substance: OMEPRAZOLE
     Indication: Product used for unknown indication
     Dosage: 40MG IN THE MORNING AND 20MG IN THE EVENING
     Route: 048
     Dates: start: 20221108
  6. DIMETHYL FUMARATE [Suspect]
     Active Substance: DIMETHYL FUMARATE
     Indication: Multiple sclerosis
     Dosage: 240MG IN EACH DOSE, TWICE A DAY;
     Route: 048
     Dates: start: 20221115

REACTIONS (7)
  - Syncope [Unknown]
  - Pain [Unknown]
  - Headache [Unknown]
  - Head discomfort [Unknown]
  - Dizziness [Unknown]
  - Balance disorder [Unknown]
  - Pain in extremity [Unknown]

NARRATIVE: CASE EVENT DATE: 20221108
